FAERS Safety Report 20631712 (Version 1)
Quarter: 2022Q1

REPORT INFORMATION
  Report Type: Spontaneous
  Country: US (occurrence: None)
  Receive Date: 20220323
  Receipt Date: 20220323
  Transmission Date: 20220423
  Serious: Yes (Other)
  Sender: FDA-Public Use
  Company Number: None

PATIENT
  Age: 12 Year
  Sex: Male
  Weight: 63 kg

DRUGS (1)
  1. MONTELUKAST [Suspect]
     Active Substance: MONTELUKAST SODIUM
     Indication: Asthma
     Route: 048

REACTIONS (6)
  - Personality change [None]
  - Social avoidant behaviour [None]
  - Crying [None]
  - Depression [None]
  - Product dose omission issue [None]
  - Affective disorder [None]

NARRATIVE: CASE EVENT DATE: 20180920
